FAERS Safety Report 17402819 (Version 2)
Quarter: 2020Q2

REPORT INFORMATION
  Report Type: Spontaneous
  Country: US (occurrence: US)
  Receive Date: 20200211
  Receipt Date: 20200413
  Transmission Date: 20200713
  Serious: No
  Sender: FDA-Public Use
  Company Number: US-PFIZER INC-2020056792

PATIENT
  Age: 63 Year
  Sex: Female

DRUGS (1)
  1. XELJANZ XR [Suspect]
     Active Substance: TOFACITINIB CITRATE
     Indication: RHEUMATOID ARTHRITIS
     Dosage: 11 MG, DAILY
     Route: 048
     Dates: start: 20200115

REACTIONS (5)
  - Myalgia [Recovering/Resolving]
  - Nasopharyngitis [Recovering/Resolving]
  - Chills [Recovering/Resolving]
  - Therapeutic product effect incomplete [Unknown]
  - Productive cough [Recovering/Resolving]
